FAERS Safety Report 6337594-5 (Version None)
Quarter: 2009Q3

REPORT INFORMATION
  Report Type: 
  Country: None (occurrence: None)
  Receive Date: 20090902
  Receipt Date: 20090827
  Transmission Date: 20100115
  Serious: Yes (Other)
  Sender: FDA-Public Use
  Company Number: BR-ROCHE-653223

PATIENT
  Sex: Male
  Weight: 85 kg

DRUGS (4)
  1. RIVOTRIL [Suspect]
     Indication: DEPRESSION
     Dosage: DOSE: 2 MG/TABLET, FREQUENCY: 3 TABLETS
     Route: 048
  2. RIVOTRIL [Suspect]
     Dosage: DOSE: 2 MG, FREQUENCY: 1 TABLET OF 2 MG IN MORNING AND 1 TABLET OF 2 MG IN THE EVENING.
     Route: 048
  3. FLUOXETINE [Suspect]
     Indication: DRUG USE FOR UNKNOWN INDICATION
     Route: 065
  4. LORAX [Concomitant]
     Indication: SLEEP DISORDER THERAPY

REACTIONS (6)
  - AGGRESSION [None]
  - DYSSTASIA [None]
  - MEDICATION ERROR [None]
  - NO THERAPEUTIC RESPONSE [None]
  - SOMNOLENCE [None]
  - SYNCOPE [None]
